FAERS Safety Report 6234362-X (Version None)
Quarter: 2009Q2

REPORT INFORMATION
  Report Type: 
  Country: None (occurrence: None)
  Receive Date: 20090615
  Receipt Date: 20090512
  Transmission Date: 20091009
  Serious: No
  Sender: FDA-Public Use
  Company Number: DSA_33632_2009

PATIENT
  Sex: Female

DRUGS (17)
  1. XENAZINE [Suspect]
     Indication: DYSTONIA
     Dosage: 12.5 MG TID
     Dates: start: 20090401
  2. CYMBALTA [Concomitant]
  3. CLARITIN /00917501/ [Concomitant]
  4. SINGULAIR /01362602/ [Concomitant]
  5. MECLIZINE /00072801/ [Concomitant]
  6. ADVAIR HFA [Concomitant]
  7. ASTELIN /00884002/ [Concomitant]
  8. ZANAFLEX [Concomitant]
  9. KLONOPIN [Concomitant]
  10. NEXIUM [Concomitant]
  11. NEURONTIN [Concomitant]
  12. LEVOTHYROXINE SODIUM [Concomitant]
  13. VESICARE /01735901/ [Concomitant]
  14. ARICEPT [Concomitant]
  15. MOTRIN [Concomitant]
  16. METOPROLOL SUCCINATE [Concomitant]
  17. LOMOTIL /00034001/ [Concomitant]

REACTIONS (3)
  - DEPRESSION [None]
  - FATIGUE [None]
  - HYPERSOMNIA [None]
